FAERS Safety Report 15011925 (Version 1)
Quarter: 2018Q2

REPORT INFORMATION
  Report Type: Spontaneous
  Country: US (occurrence: US)
  Receive Date: 20180614
  Receipt Date: 20180614
  Transmission Date: 20180711
  Serious: No
  Sender: FDA-Public Use
  Company Number: US-PERRIGO-18US000935

PATIENT
  Sex: Male
  Weight: 118.82 kg

DRUGS (1)
  1. HYDROCORTISONE VALERATE. [Suspect]
     Active Substance: HYDROCORTISONE VALERATE
     Indication: SKIN DISCOLOURATION
     Dosage: SMALL AMOUNT, TWICE DAILY, PRN
     Route: 061
     Dates: start: 2003

REACTIONS (2)
  - Drug effect decreased [Unknown]
  - Off label use [Unknown]

NARRATIVE: CASE EVENT DATE: 2003
